FAERS Safety Report 6456111-2 (Version None)
Quarter: 2009Q4

REPORT INFORMATION
  Report Type: 
  Country: None (occurrence: None)
  Receive Date: 20091119
  Receipt Date: 20091116
  Transmission Date: 20100525
  Serious: Yes (Hospitalization)
  Sender: FDA-Public Use
  Company Number: IDA-00287

PATIENT
  Age: 47 Year
  Sex: Male

DRUGS (7)
  1. NEXIUM [Suspect]
     Indication: VARICES OESOPHAGEAL
     Dosage: ORAL
  2. PROPRANOLOL [Suspect]
     Indication: VARICES OESOPHAGEAL
     Dosage: 160 MG ORAL
     Route: 048
     Dates: start: 20000101
  3. PREVISCAN (FLUINDIONE) [Suspect]
     Indication: ESSENTIAL THROMBOCYTHAEMIA
     Dosage: 15 MG DAILY ORAL
     Route: 048
     Dates: start: 20000101
  4. ANAGRELIDE HCL [Suspect]
     Indication: ESSENTIAL THROMBOCYTHAEMIA
     Dosage: .5 MG QID ORAL
     Route: 048
     Dates: start: 20080228
  5. URSODIOL [Suspect]
     Dosage: 250 MG DAILY ORAL
     Route: 048
     Dates: start: 20030101
  6. ACETAMINOPHEN [Suspect]
     Dosage: ORAL
     Route: 048
  7. TARDYFERON (FERROUS SULFATE) [Suspect]
     Dosage: 2 DF DAILY ORAL
     Route: 048
     Dates: start: 20000101

REACTIONS (3)
  - ISCHAEMIC STROKE [None]
  - PULMONARY EMBOLISM [None]
  - RECTAL HAEMORRHAGE [None]
